FAERS Safety Report 5272323-8 (Version None)
Quarter: 2007Q1

REPORT INFORMATION
  Report Type: 
  Country: None (occurrence: None)
  Receive Date: 20070322
  Receipt Date: 20070313
  Transmission Date: 20070707
  Serious: Yes (Other)
  Sender: FDA-Public Use
  Company Number: GB-JNJFOC-20070304470

PATIENT
  Age: 5 Decade
  Sex: Female

DRUGS (1)
  1. RISPERDAL [Suspect]
     Indication: DRUG USE FOR UNKNOWN INDICATION
     Dosage: BEEN ON FOR 3 TO 4 MONTHS
     Route: 048

REACTIONS (3)
  - BREAST TENDERNESS [None]
  - GALACTORRHOEA [None]
  - HYPERPROLACTINAEMIA [None]
